FAERS Safety Report 5999547-6 (Version None)
Quarter: 2008Q4

REPORT INFORMATION
  Report Type: 
  Country: None (occurrence: None)
  Receive Date: 20081215
  Receipt Date: 20080822
  Transmission Date: 20090506
  Serious: No
  Sender: FDA-Public Use
  Company Number: US-AMGEN-KDL303385

PATIENT
  Sex: Female

DRUGS (11)
  1. ENBREL [Suspect]
     Indication: RHEUMATOID ARTHRITIS
  2. PREDNISONE TAB [Concomitant]
  3. METHOTREXATE [Concomitant]
  4. SIMVASTATIN [Concomitant]
  5. AVALIDE [Concomitant]
  6. HYDROCHLOROTHIAZIDE [Concomitant]
  7. ATENOLOL [Concomitant]
  8. NEXIUM [Concomitant]
  9. DYAZIDE [Concomitant]
  10. ESTRADIOL [Concomitant]
  11. RELIFEN [Concomitant]

REACTIONS (1)
  - INJECTION SITE IRRITATION [None]
